FAERS Safety Report 16403122 (Version 2)
Quarter: 2019Q3

REPORT INFORMATION
  Report Type: Report from Study
  Country: JP (occurrence: JP)
  Receive Date: 20190607
  Receipt Date: 20190703
  Transmission Date: 20191004
  Serious: Yes (Hospitalization)
  Sender: FDA-Public Use
  Company Number: JP-CELLTRION INC.-2016JP000512

PATIENT

DRUGS (36)
  1. INFLIXIMAB BS FOR I.V. INFUSION100 MG [NK] [Suspect]
     Active Substance: INFLIXIMAB
     Dosage: 280 MG/BODY/DAY
     Route: 042
     Dates: start: 20170303, end: 20170303
  2. INFLIXIMAB BS FOR I.V. INFUSION100 MG [NK] [Suspect]
     Active Substance: INFLIXIMAB
     Dosage: 280 MG/BODY/DAY
     Route: 042
     Dates: start: 20170502, end: 20170502
  3. COLONEL [Concomitant]
     Active Substance: CALCIUM POLYCARBOPHIL
     Indication: COLITIS ULCERATIVE
     Dosage: 3000 MG, DAILY
     Dates: start: 20150409, end: 20150511
  4. LEUKERIN [Concomitant]
     Active Substance: MERCAPTOPURINE
     Indication: COLITIS ULCERATIVE
     Dosage: 50 MG, DAILY
     Dates: start: 20150409, end: 20150831
  5. PREDNISOLONE. [Concomitant]
     Active Substance: PREDNISOLONE
     Dosage: 20 MG, DAILY
     Dates: start: 20150901, end: 20150928
  6. INFLIXIMAB BS FOR I.V. INFUSION100 MG [NK] [Suspect]
     Active Substance: INFLIXIMAB
     Dosage: 280 MG/BODY/DAY
     Route: 042
     Dates: start: 20150924, end: 20150924
  7. INFLIXIMAB BS FOR I.V. INFUSION100 MG [NK] [Suspect]
     Active Substance: INFLIXIMAB
     Dosage: 280 MG/BODY/DAY
     Route: 042
     Dates: start: 20160506, end: 20160506
  8. INFLIXIMAB BS FOR I.V. INFUSION100 MG [NK] [Suspect]
     Active Substance: INFLIXIMAB
     Dosage: 280 MG/BODY/DAY
     Route: 042
     Dates: start: 20160701, end: 20160701
  9. INFLIXIMAB BS FOR I.V. INFUSION100 MG [NK] [Suspect]
     Active Substance: INFLIXIMAB
     Dosage: 280 MG/BODY/DAY
     Route: 042
     Dates: start: 20170704, end: 20170704
  10. BENET [Concomitant]
     Active Substance: RISEDRONATE SODIUM
     Indication: PROPHYLAXIS
     Dosage: 2.5 MG, DAILY
     Dates: start: 20150409, end: 20180110
  11. LAC-B [Concomitant]
     Active Substance: BIFIDOBACTERIUM SPP.
     Dosage: 6 G, DAILY
     Dates: start: 20150526, end: 20161207
  12. LEUKERIN [Concomitant]
     Active Substance: MERCAPTOPURINE
     Dosage: 20 MG, DAILY
     Dates: start: 20151118
  13. PREDNISOLONE. [Concomitant]
     Active Substance: PREDNISOLONE
     Dosage: 15 MG, DAILY
     Dates: start: 20150929, end: 20151215
  14. INFLIXIMAB BS FOR I.V. INFUSION100 MG [NK] [Suspect]
     Active Substance: INFLIXIMAB
     Indication: COLITIS ULCERATIVE
     Dosage: 280 MG/BODY/DAY
     Route: 042
     Dates: start: 20150409, end: 20150409
  15. INFLIXIMAB BS FOR I.V. INFUSION100 MG [NK] [Suspect]
     Active Substance: INFLIXIMAB
     Dosage: 280 MG/BODY/DAY
     Route: 042
     Dates: start: 20150729, end: 20150729
  16. INFLIXIMAB BS FOR I.V. INFUSION100 MG [NK] [Suspect]
     Active Substance: INFLIXIMAB
     Dosage: 280 MG/BODY/DAY
     Route: 042
     Dates: start: 20160311, end: 20160311
  17. INFLIXIMAB BS FOR I.V. INFUSION100 MG [NK] [Suspect]
     Active Substance: INFLIXIMAB
     Dosage: 280 MG/BODY/DAY
     Route: 042
     Dates: start: 20160902, end: 20160902
  18. INFLIXIMAB BS FOR I.V. INFUSION100 MG [NK] [Suspect]
     Active Substance: INFLIXIMAB
     Dosage: 280 MG/BODY/DAY
     Route: 042
     Dates: start: 20161111, end: 20161111
  19. THIATON [Concomitant]
     Active Substance: TIQUIZIUM BROMIDE
     Indication: COLITIS ULCERATIVE
     Dosage: 30 MG, DAILY
     Dates: start: 20150409
  20. PENTASA [Concomitant]
     Active Substance: MESALAMINE
     Dosage: 1 G, DAILY
     Dates: start: 20150729, end: 20150916
  21. PREDNISOLONE. [Concomitant]
     Active Substance: PREDNISOLONE
     Dosage: 5 MG, DAILY
     Dates: start: 20160210
  22. INFLIXIMAB BS FOR I.V. INFUSION100 MG [NK] [Suspect]
     Active Substance: INFLIXIMAB
     Dosage: 280 MG/BODY/DAY
     Route: 042
     Dates: start: 20150423, end: 20150423
  23. INFLIXIMAB BS FOR I.V. INFUSION100 MG [NK] [Suspect]
     Active Substance: INFLIXIMAB
     Dosage: 280 MG/BODY/DAY
     Route: 042
     Dates: start: 20151118, end: 20151118
  24. INFLIXIMAB BS FOR I.V. INFUSION100 MG [NK] [Suspect]
     Active Substance: INFLIXIMAB
     Dosage: 280 MG/BODY/DAY
     Route: 042
     Dates: start: 20160113, end: 20160113
  25. ASACOL [Concomitant]
     Active Substance: MESALAMINE
     Indication: COLITIS ULCERATIVE
     Dosage: 3600 MG, DAILY
     Dates: start: 20150409, end: 20150916
  26. PENTASA [Concomitant]
     Active Substance: MESALAMINE
     Indication: COLITIS ULCERATIVE
     Dosage: 1 G, DAILY
     Dates: start: 20150526, end: 20150728
  27. PREDNISOLONE. [Concomitant]
     Active Substance: PREDNISOLONE
     Indication: COLITIS ULCERATIVE
     Dosage: 40 MG, DAILY
     Dates: start: 20150807, end: 20150824
  28. PREDNISOLONE. [Concomitant]
     Active Substance: PREDNISOLONE
     Dosage: 30 MG, DAILY
     Dates: start: 20150825, end: 20150831
  29. INFLIXIMAB BS FOR I.V. INFUSION100 MG [NK] [Suspect]
     Active Substance: INFLIXIMAB
     Dosage: 280 MG/BODY/DAY
     Route: 042
     Dates: start: 20170106, end: 20170106
  30. LAC-B [Concomitant]
     Active Substance: BIFIDOBACTERIUM SPP.
     Indication: COLITIS ULCERATIVE
     Dosage: 3 G, DAILY
     Dates: start: 20150409, end: 20150518
  31. LEUKERIN [Concomitant]
     Active Substance: MERCAPTOPURINE
     Dosage: 30 MG, DAILY
     Dates: start: 20150901, end: 20151117
  32. SODIUM FERROUS CITRATE [Concomitant]
     Active Substance: SODIUM FERROUS CITRATE
     Indication: IRON DEFICIENCY ANAEMIA
     Dosage: 100 MG, DAILY
     Dates: start: 20150409, end: 20180313
  33. INFLIXIMAB BS FOR I.V. INFUSION100 MG [NK] [Suspect]
     Active Substance: INFLIXIMAB
     Dosage: 280 MG/BODY/DAY
     Route: 042
     Dates: start: 20150603, end: 20150603
  34. ASACOL [Concomitant]
     Active Substance: MESALAMINE
     Dosage: 3600 MG, DAILY
     Dates: start: 20151118, end: 20161007
  35. OLMETEC [Concomitant]
     Active Substance: OLMESARTAN MEDOXOMIL
     Indication: HYPERTENSION
     Dosage: 10 MG, DAILY
     Dates: start: 20150409, end: 20150511
  36. PREDNISOLONE. [Concomitant]
     Active Substance: PREDNISOLONE
     Dosage: 10 MG, DAILY
     Dates: start: 20151216, end: 20160209

REACTIONS (7)
  - Hypokalaemia [Recovered/Resolved]
  - Enterocolitis bacterial [Recovered/Resolved]
  - Inappropriate schedule of product administration [Unknown]
  - Cytomegalovirus enterocolitis [Recovered/Resolved]
  - Condition aggravated [Recovered/Resolved]
  - Condition aggravated [Recovered/Resolved]
  - Bronchopulmonary aspergillosis [Recovering/Resolving]

NARRATIVE: CASE EVENT DATE: 20150519
